FAERS Safety Report 21515950 (Version 1)
Quarter: 2022Q4

REPORT INFORMATION
  Report Type: Spontaneous
  Country: US (occurrence: US)
  Receive Date: 20221027
  Receipt Date: 20221027
  Transmission Date: 20230113
  Serious: No
  Sender: FDA-Public Use
  Company Number: US-BRISTOL-MYERS SQUIBB COMPANY-2022-127590

PATIENT
  Age: 77 Year
  Sex: Female
  Weight: 59.42 kg

DRUGS (1)
  1. REVLIMID [Suspect]
     Active Substance: LENALIDOMIDE
     Indication: Plasma cell myeloma
     Dosage: DAILY FOR 14DAYS
     Route: 048
     Dates: start: 20221001

REACTIONS (6)
  - Constipation [Unknown]
  - Insomnia [Unknown]
  - Lip swelling [Unknown]
  - Lip pruritus [Unknown]
  - Swelling face [Unknown]
  - Off label use [Unknown]
